FAERS Safety Report 20672021 (Version 1)
Quarter: 2022Q2

REPORT INFORMATION
  Report Type: Spontaneous
  Country: FR (occurrence: FR)
  Receive Date: 20220405
  Receipt Date: 20220405
  Transmission Date: 20220721
  Serious: Yes (Death)
  Sender: FDA-Public Use
  Company Number: FR-SUN PHARMACEUTICAL INDUSTRIES LTD-2022RR-331719

PATIENT
  Age: 58 Year
  Sex: Female
  Weight: 38 kg

DRUGS (2)
  1. MORPHINE [Suspect]
     Active Substance: MORPHINE
     Indication: Palliative sedation
     Dosage: 1MG/HOUR
     Route: 041
     Dates: start: 20220127, end: 20220129
  2. MIDAZOLAM [Suspect]
     Active Substance: MIDAZOLAM
     Indication: Palliative sedation
     Dosage: 2MG/HOUR
     Route: 041
     Dates: start: 20220127, end: 20220128

REACTIONS (2)
  - Bradypnoea [Fatal]
  - Coma [Fatal]

NARRATIVE: CASE EVENT DATE: 20220128
